FAERS Safety Report 19401200 (Version 4)
Quarter: 2021Q4

REPORT INFORMATION
  Report Type: Spontaneous
  Country: JP (occurrence: JP)
  Receive Date: 20210611
  Receipt Date: 20211221
  Transmission Date: 20220304
  Serious: Yes (Other)
  Sender: FDA-Public Use
  Company Number: JP-AUROBINDO-AUR-APL-2020-033892

PATIENT
  Age: 58 Year
  Sex: Male

DRUGS (5)
  1. FOLOTYN [Suspect]
     Active Substance: PRALATREXATE
     Indication: Cutaneous T-cell lymphoma stage II
     Dosage: 30 MILLIGRAM/SQ. METER, CYCLICAL, (ONCE WEEKLY)
     Route: 042
  2. FOLOTYN [Suspect]
     Active Substance: PRALATREXATE
     Dosage: 30 MILLIGRAM/SQ. METER
     Route: 042
     Dates: start: 201809, end: 201903
  3. FORODESINE HYDROCHLORIDE [Suspect]
     Active Substance: FORODESINE HYDROCHLORIDE
     Indication: Cutaneous T-cell lymphoma stage II
     Dosage: UNK
     Route: 048
     Dates: start: 201903
  4. VITAMIN B12 [Concomitant]
     Active Substance: CYANOCOBALAMIN
     Indication: Product used for unknown indication
     Dosage: 0.5 MILLIGRAM, EVERY 4 WEEKS
     Route: 042
  5. FOLIC ACID [Concomitant]
     Active Substance: FOLIC ACID
     Indication: Product used for unknown indication
     Dosage: 1.25 MILLIGRAM, DAILY
     Route: 048

REACTIONS (6)
  - Malignant neoplasm progression [Unknown]
  - Malaise [Unknown]
  - Anaemia [Unknown]
  - Nausea [Unknown]
  - Mucosal inflammation [Unknown]
  - Fatigue [Unknown]

NARRATIVE: CASE EVENT DATE: 20190301
